FAERS Safety Report 6252544-8 (Version None)
Quarter: 2009Q2

REPORT INFORMATION
  Report Type: 
  Country: None (occurrence: None)
  Receive Date: 20090629
  Receipt Date: 20090629
  Transmission Date: 20091009
  Serious: Yes (Disabling)
  Sender: FDA-Public Use
  Company Number: None

PATIENT
  Sex: Male
  Weight: 79.3795 kg

DRUGS (3)
  1. LEVAQUIN [Suspect]
     Indication: INFECTION
     Dosage: 500 MG/10 1-DAILY
     Dates: start: 20090225
  2. LEVAQUIN [Suspect]
     Indication: INFECTION
     Dosage: 500 MG/10 1-DAILY
     Dates: start: 20090307
  3. CIPRO [Suspect]
     Indication: INFECTION
     Dosage: 500 MG/14 2 DAILY
     Dates: start: 20090401

REACTIONS (2)
  - ARTHRALGIA [None]
  - JOINT SWELLING [None]
